FAERS Safety Report 13456281 (Version 4)
Quarter: 2017Q3

REPORT INFORMATION
  Report Type: Spontaneous
  Country: JP (occurrence: JP)
  Receive Date: 20170419
  Receipt Date: 20170922
  Transmission Date: 20171127
  Serious: Yes (Other)
  Sender: FDA-Public Use
  Company Number: JP-UNITED THERAPEUTICS-UNT-2017-004775

PATIENT
  Age: 34 Year
  Sex: Female
  Weight: 45 kg

DRUGS (14)
  1. REMODULIN [Suspect]
     Active Substance: TREPROSTINIL
     Dosage: FLOW RATE 9.5 MCL/HOUR
     Route: 058
     Dates: start: 20170331
  2. REMODULIN [Suspect]
     Active Substance: TREPROSTINIL
     Dosage: FLOW RATE WAS 11.0 MCL/HOUR
     Route: 058
     Dates: start: 20170412
  3. NEXIUM [Concomitant]
     Active Substance: ESOMEPRAZOLE MAGNESIUM
     Indication: PRODUCT USED FOR UNKNOWN INDICATION
     Route: 048
  4. REMODULIN [Suspect]
     Active Substance: TREPROSTINIL
     Indication: PULMONARY ARTERIAL HYPERTENSION
     Dosage: UNK
     Route: 058
     Dates: start: 20170323
  5. REMODULIN [Suspect]
     Active Substance: TREPROSTINIL
     Dosage: 0.005 ?G/KG, AT THE FLOW RATE OF 5.5 MCL/HOUR
     Route: 058
  6. TRAMCET [Suspect]
     Active Substance: ACETAMINOPHEN\TRAMADOL
     Indication: PRODUCT USED FOR UNKNOWN INDICATION
     Dosage: 3 TABLETS DIVIDED INTO THREE DOSES/DAY
     Route: 048
  7. REMODULIN [Suspect]
     Active Substance: TREPROSTINIL
     Dosage: FLOW RATE WAS 8.5 MCL/HOUR
     Route: 058
     Dates: start: 20170411
  8. REMODULIN [Suspect]
     Active Substance: TREPROSTINIL
     Dosage: 0.066 ?G/KG, CONTINUING FLOW RATE OF 18.0 MCL/HOUR
     Route: 058
     Dates: start: 20170609
  9. TRAMCET [Suspect]
     Active Substance: ACETAMINOPHEN\TRAMADOL
     Dosage: TWO-THREE TABLETS PER DAY
     Route: 048
     Dates: start: 201704
  10. TRAMCET [Suspect]
     Active Substance: ACETAMINOPHEN\TRAMADOL
     Dosage: TWO TABLETS DIVIDED INTO TWO DOSES PER DAY
     Route: 048
  11. REMODULIN [Suspect]
     Active Substance: TREPROSTINIL
     Dosage: FLOW RATE WAS 9.5 MCL/HOUR
     Route: 058
     Dates: start: 20170411
  12. TRAMCET [Suspect]
     Active Substance: ACETAMINOPHEN\TRAMADOL
     Dosage: 1 DOSAGE FORM
     Route: 048
  13. TRAMCET [Suspect]
     Active Substance: ACETAMINOPHEN\TRAMADOL
     Dosage: 4 TABLETS DIVIDED INTO FOUR DOSES/DAY
     Route: 048
     Dates: start: 201703, end: 20170407
  14. REMODULIN [Suspect]
     Active Substance: TREPROSTINIL
     Dosage: FLOW RATE WAS 9.5 MCL/HOUR
     Route: 058
     Dates: start: 20170407

REACTIONS (11)
  - Infusion site induration [Recovering/Resolving]
  - Infusion site discharge [Unknown]
  - Infusion site pain [Recovering/Resolving]
  - Infusion site erythema [Unknown]
  - Device issue [Recovered/Resolved]
  - Aspartate aminotransferase increased [Unknown]
  - Infusion site discolouration [Unknown]
  - Pain in extremity [Recovering/Resolving]
  - Infusion site swelling [Unknown]
  - Infusion site pruritus [Unknown]
  - Alanine aminotransferase increased [Unknown]

NARRATIVE: CASE EVENT DATE: 2017
